FAERS Safety Report 6809441-6 (Version None)
Quarter: 2010Q2

REPORT INFORMATION
  Report Type: 
  Country: None (occurrence: None)
  Receive Date: 20100625
  Receipt Date: 20100608
  Transmission Date: 20101027
  Serious: Yes (Death, Hospitalization, Other)
  Sender: FDA-Public Use
  Company Number: APP201000526

PATIENT
  Age: 74 Year
  Sex: Female

DRUGS (15)
  1. HEPARIN SODIUM INJECTION [Suspect]
     Indication: ANTICOAGULANT THERAPY
     Dosage: 11000 UNITS SUBCUTANEOUSLY
     Route: 058
     Dates: start: 20071127, end: 20070101
  2. HEPARIN SODIUM 5,000 UNITS IN DEXTROSE 5% [Suspect]
     Indication: THROMBOSIS
     Dosage: 700 UNITS EVERY HR; IV, 1000 UNITS EVERY HR; IV
     Route: 042
     Dates: start: 20071210, end: 20071212
  3. HEPARIN SODIUM 5,000 UNITS IN DEXTROSE 5% [Suspect]
     Indication: THROMBOSIS
     Dosage: 700 UNITS EVERY HR; IV, 1000 UNITS EVERY HR; IV
     Route: 042
     Dates: start: 20071212, end: 20071216
  4. WARFARIN SODIUM [Concomitant]
  5. LOPRESSOR [Concomitant]
  6. LASIX [Concomitant]
  7. DIGOXIN [Concomitant]
  8. SPIRONOLACTONE [Concomitant]
  9. NAMENDA [Concomitant]
  10. LOVASTATIN [Concomitant]
  11. PAXIL [Concomitant]
  12. AMOXICILLIN [Concomitant]
  13. PENICILLIN V POTASSIUM (PHENOXYMETHYLPENICILLIN POTASSIUM) [Concomitant]
  14. PAROXETINE HCL [Concomitant]
  15. ARICEPT [Concomitant]

REACTIONS (22)
  - ALKALOSIS [None]
  - ATRIAL FIBRILLATION [None]
  - CANDIDIASIS [None]
  - CARDIAC FAILURE CONGESTIVE [None]
  - DIARRHOEA [None]
  - DYSPNOEA [None]
  - HEPATIC CONGESTION [None]
  - HEPATIC ENZYME INCREASED [None]
  - HYPERVENTILATION [None]
  - HYPOXIA [None]
  - LEFT ATRIAL DILATATION [None]
  - LEFT VENTRICULAR HYPERTROPHY [None]
  - MALNUTRITION [None]
  - MENTAL STATUS CHANGES [None]
  - METABOLIC ENCEPHALOPATHY [None]
  - MITRAL VALVE STENOSIS [None]
  - PLEURAL EFFUSION [None]
  - PULMONARY EMBOLISM [None]
  - RENAL FAILURE ACUTE [None]
  - THROMBOSIS [None]
  - TRICUSPID VALVE INCOMPETENCE [None]
  - UROSEPSIS [None]
